FAERS Safety Report 5115594-0 (Version None)
Quarter: 2006Q3

REPORT INFORMATION
  Report Type: 
  Country: None (occurrence: None)
  Receive Date: 20060925
  Receipt Date: 20060912
  Transmission Date: 20061208
  Serious: Yes (Hospitalization)
  Sender: FDA-Public Use
  Company Number: CLOF-10319

PATIENT
  Age: 56 Year
  Sex: Female
  Weight: 69.7 kg

DRUGS (15)
  1. CLOFARABINE [Suspect]
     Indication: MYELOID LEUKAEMIA
     Dates: start: 20060805
  2. CYTOXAN [Suspect]
     Indication: MYELOID LEUKAEMIA
     Dates: start: 20060805
  3. BLOOD TRANSFUSION [Suspect]
     Indication: DRUG USE FOR UNKNOWN INDICATION
  4. TOPROL-XL [Concomitant]
  5. PROTONIX [Concomitant]
  6. AMBIEN [Concomitant]
  7. ATIVAN [Concomitant]
  8. MSIR [Concomitant]
  9. ACETAMINOPHEN [Concomitant]
  10. ALLOPURINOL [Concomitant]
  11. HYDROCORTISONE [Concomitant]
  12. NORFLOXACIN [Concomitant]
  13. VALTREX [Concomitant]
  14. DAPSONE [Concomitant]
  15. AMOXICILLIN [Concomitant]

REACTIONS (8)
  - BONE MARROW FAILURE [None]
  - FEBRILE NEUTROPENIA [None]
  - HAEMOLYSIS [None]
  - HEPATIC STEATOSIS [None]
  - HEPATITIS [None]
  - LIP DRY [None]
  - PNEUMONIA FUNGAL [None]
  - TRANSFUSION REACTION [None]
